FAERS Safety Report 9316855 (Version 1)
Quarter: 2013Q2

REPORT INFORMATION
  Report Type: Spontaneous
  Country: CN (occurrence: None)
  Receive Date: 20130523
  Receipt Date: 20130523
  Transmission Date: 20140414
  Serious: Yes (Other)
  Sender: FDA-Public Use
  Company Number: VAL_01226_2012

PATIENT
  Age: 89 Year
  Sex: Female
  Weight: 69 kg

DRUGS (1)
  1. BENAZEPRIL (BENAZEPRIL) [Suspect]
     Indication: HYPERTENSION
     Route: 048
     Dates: start: 20090319, end: 20090319

REACTIONS (3)
  - Erythema [None]
  - Face oedema [None]
  - Asthenia [None]
